FAERS Safety Report 6054879-0 (Version None)
Quarter: 2009Q1

REPORT INFORMATION
  Report Type: 
  Country: None (occurrence: None)
  Receive Date: 20090128
  Receipt Date: 20090116
  Transmission Date: 20090719
  Serious: Yes (Other)
  Sender: FDA-Public Use
  Company Number: PHHY2008CH27689

PATIENT
  Sex: Male

DRUGS (4)
  1. ZOMETA [Suspect]
     Indication: RENAL CELL CARCINOMA
     Dosage: 4 MG, QMO
     Route: 042
     Dates: start: 20060101, end: 20080401
  2. INTERFERON ALFA [Suspect]
     Indication: RENAL CELL CARCINOMA
     Dosage: UNK
     Dates: start: 20070101
  3. NEXAVAR [Suspect]
     Indication: RENAL CELL CARCINOMA
     Dosage: UNK
     Dates: start: 20070101
  4. SUTENT [Suspect]
     Indication: RENAL CELL CARCINOMA
     Dosage: UNK
     Dates: start: 20071101

REACTIONS (4)
  - CONDITION AGGRAVATED [None]
  - OSTEOMYELITIS [None]
  - OSTEONECROSIS [None]
  - TOOTH EXTRACTION [None]
